FAERS Safety Report 21619194 (Version 2)
Quarter: 2022Q4

REPORT INFORMATION
  Report Type: Spontaneous
  Country: JP (occurrence: JP)
  Receive Date: 20221120
  Receipt Date: 20221216
  Transmission Date: 20230112
  Serious: Yes (Hospitalization, Other)
  Sender: FDA-Public Use
  Company Number: JP-ASTELLAS-2022JP008887

PATIENT
  Age: 7 Decade
  Sex: Male

DRUGS (1)
  1. PADCEV [Suspect]
     Active Substance: ENFORTUMAB VEDOTIN-EJFV
     Indication: Transitional cell carcinoma
     Dosage: DOSE WAS 80MG AT 1.25MG/KG,ONCE WEEKLY FOR 3 CONSECUTIVE WEEKS,FOLLOWED BY A REST PERIOD AT WEEK 4
     Route: 041
     Dates: start: 20220608

REACTIONS (8)
  - Malignant neoplasm progression [Not Recovered/Not Resolved]
  - Malaise [Recovered/Resolved]
  - Glycosylated haemoglobin increased [Not Recovered/Not Resolved]
  - Pyrexia [Recovered/Resolved]
  - Rash [Recovered/Resolved]
  - Haematuria [Not Recovered/Not Resolved]
  - Hyperglycaemia [Not Recovered/Not Resolved]
  - Tumour associated fever [Not Recovered/Not Resolved]
